FAERS Safety Report 6859432-4 (Version None)
Quarter: 2010Q3

REPORT INFORMATION
  Report Type: 
  Country: None (occurrence: None)
  Receive Date: 20100719
  Receipt Date: 20080227
  Transmission Date: 20110219
  Serious: No
  Sender: FDA-Public Use
  Company Number: US-PFIZER INC-2008019940

PATIENT
  Age: 61 Year
  Sex: Male
  Weight: 72.6 kg

DRUGS (4)
  1. CHANTIX [Suspect]
     Indication: SMOKING CESSATION THERAPY
     Dosage: 2 DF
  2. ALL OTHER THERAPEUTIC PRODUCTS [Suspect]
     Indication: SMOKING CESSATION THERAPY
     Route: 062
     Dates: start: 20070401, end: 20070401
  3. ALL OTHER THERAPEUTIC PRODUCTS [Suspect]
     Route: 062
     Dates: start: 20071001, end: 20071001
  4. NAPROXEN [Concomitant]

REACTIONS (2)
  - RASH ERYTHEMATOUS [None]
  - RASH PRURITIC [None]
